FAERS Safety Report 6485580-7 (Version None)
Quarter: 2009Q4

REPORT INFORMATION
  Report Type: 
  Country: None (occurrence: None)
  Receive Date: 20091209
  Receipt Date: 20090929
  Transmission Date: 20100525
  Serious: No
  Sender: FDA-Public Use
  Company Number: US-AMGEN-KDL354031

PATIENT
  Sex: Male
  Weight: 79.5 kg

DRUGS (13)
  1. ENBREL [Suspect]
     Indication: PSORIASIS
     Route: 058
     Dates: start: 20081101
  2. ALDACTONE [Concomitant]
     Dates: start: 20090101, end: 20090601
  3. ATIVAN [Concomitant]
     Dates: start: 20080712
  4. WELLBUTRIN [Concomitant]
  5. ASPIRIN [Concomitant]
  6. TOPROL-XL [Concomitant]
  7. CRESTOR [Concomitant]
  8. DOCUSATE [Concomitant]
  9. TINZAPARIN SODIUM [Concomitant]
  10. TOPICORTE [Concomitant]
  11. TRIAMCINOLONE ACETONIDE [Concomitant]
  12. NABUMETONE [Concomitant]
  13. MULTI-VITAMINS [Concomitant]

REACTIONS (6)
  - BREAST TENDERNESS [None]
  - GYNAECOMASTIA [None]
  - INJECTION SITE ERYTHEMA [None]
  - INJECTION SITE PRURITUS [None]
  - INJECTION SITE SWELLING [None]
  - INJECTION SITE WARMTH [None]
